FAERS Safety Report 9964186 (Version 1)
Quarter: 2014Q1

REPORT INFORMATION
  Report Type: Spontaneous
  Country: FR (occurrence: FR)
  Receive Date: 20140305
  Receipt Date: 20140305
  Transmission Date: 20141002
  Serious: Yes (Death)
  Sender: FDA-Public Use
  Company Number: PHHY2014FR026639

PATIENT
  Age: 92 Year
  Sex: Female

DRUGS (7)
  1. VOLTARENE [Suspect]
     Dosage: UNK UKN, UNK
     Dates: end: 20131231
  2. AMIODARONE [Interacting]
     Dosage: 100 MG, QD
     Route: 048
     Dates: end: 20131231
  3. PRADAXA [Interacting]
     Indication: ARRHYTHMIA
     Dosage: 110 MG, BID
     Route: 048
     Dates: end: 20131231
  4. SPIRONOLACTONE [Concomitant]
     Dosage: UNK UKN, UNK
  5. SPASFON [Concomitant]
     Dosage: UNK UKN, UNK
  6. DOLIPRANE [Concomitant]
     Dosage: UNK UKN, UNK
  7. MACROGOL [Concomitant]
     Dosage: UNK UKN, UNK

REACTIONS (2)
  - Haemorrhage intracranial [Fatal]
  - Drug interaction [Unknown]
